FAERS Safety Report 12736778 (Version 1)
Quarter: 2016Q3

REPORT INFORMATION
  Report Type: Spontaneous
  Country: CN (occurrence: CN)
  Receive Date: 20160913
  Receipt Date: 20160913
  Transmission Date: 20161109
  Serious: Yes (Other)
  Sender: FDA-Public Use
  Company Number: CN-ROCHE-1828973

PATIENT
  Age: 49 Year
  Sex: Male
  Weight: 50 kg

DRUGS (2)
  1. OXALIPLATIN. [Concomitant]
     Active Substance: OXALIPLATIN
     Indication: COLON CANCER
     Dosage: ONCE PER 21 DAYS
     Route: 041
     Dates: start: 20160131, end: 20160131
  2. XELODA [Suspect]
     Active Substance: CAPECITABINE
     Indication: COLON CANCER
     Route: 048
     Dates: start: 20160131, end: 20160313

REACTIONS (1)
  - Electrocardiogram abnormal [Unknown]

NARRATIVE: CASE EVENT DATE: 20160207
